FAERS Safety Report 8429460-6 (Version None)
Quarter: 2012Q2

REPORT INFORMATION
  Report Type: 
  Country: None (occurrence: None)
  Receive Date: 20120612
  Receipt Date: 20120601
  Transmission Date: 20120825
  Serious: Yes (Hospitalization, Other)
  Sender: FDA-Public Use
  Company Number: US-SANOFI-AVENTIS-2011SA048596

PATIENT
  Age: 70 Year
  Sex: Male

DRUGS (8)
  1. LASIX [Concomitant]
     Route: 048
  2. ASPIRIN [Concomitant]
  3. METOPROLOL TARTRATE [Concomitant]
  4. LISINOPRIL [Concomitant]
     Route: 048
  5. COREG [Concomitant]
     Route: 048
  6. POTASSIUM [Concomitant]
  7. PLAVIX [Suspect]
     Route: 048
     Dates: start: 20070301, end: 20080804
  8. COREG [Concomitant]
     Route: 048

REACTIONS (11)
  - DYSARTHRIA [None]
  - HEMIPARESIS [None]
  - CHEST PAIN [None]
  - HEADACHE [None]
  - PAIN IN EXTREMITY [None]
  - GAIT DISTURBANCE [None]
  - CORONARY ARTERY OCCLUSION [None]
  - HYPERTENSION [None]
  - HAEMORRHAGIC STROKE [None]
  - BALANCE DISORDER [None]
  - PROTEINURIA [None]
